FAERS Safety Report 8342799-8 (Version None)
Quarter: 2012Q2

REPORT INFORMATION
  Report Type: 
  Country: None (occurrence: None)
  Receive Date: 20120503
  Receipt Date: 20120424
  Transmission Date: 20120825
  Serious: Yes (Other)
  Sender: FDA-Public Use
  Company Number: 2007JP005566

PATIENT
  Age: 55 Year
  Sex: Female
  Weight: 55 kg

DRUGS (17)
  1. LIVALO [Concomitant]
  2. ENALAPRIL MALEATE [Concomitant]
  3. TACROLIMUS [Suspect]
     Indication: LUPUS NEPHRITIS
     Dosage: 3;1;1.5;1 MG, UNKNOWN.D, ORAL
     Route: 048
     Dates: start: 20070817, end: 20071224
  4. TACROLIMUS [Suspect]
     Indication: LUPUS NEPHRITIS
     Dosage: 3;1;1.5;1 MG, UNKNOWN.D, ORAL
     Route: 048
     Dates: start: 20071225
  5. TACROLIMUS [Suspect]
     Indication: LUPUS NEPHRITIS
     Dosage: 3;1;1.5;1 MG, UNKNOWN.D, ORAL
     Route: 048
     Dates: start: 20070511, end: 20070816
  6. ALLOPURINOL [Concomitant]
  7. AMOBAN (ZOPICLONE) [Concomitant]
  8. NESINA (ALOGLIPTIN BENZOATE) [Concomitant]
  9. ROHYPNOL (FLUNITRAZEPAM) [Concomitant]
  10. CARVEDILOL [Concomitant]
  11. ADALAT [Concomitant]
  12. PREDNISOLONE [Suspect]
     Dosage: 7.5; 7;6;5 MG, UNKNOWN/D, ORAL
     Route: 048
     Dates: start: 20071113, end: 20080324
  13. PREDNISOLONE [Suspect]
     Dosage: 7.5; 7;6;5 MG, UNKNOWN/D, ORAL
     Route: 048
     Dates: start: 20080325, end: 20080722
  14. PREDNISOLONE [Suspect]
     Dosage: 7.5; 7;6;5 MG, UNKNOWN/D, ORAL
     Route: 048
     Dates: end: 20071112
  15. PREDNISOLONE [Suspect]
     Dosage: 7.5; 7;6;5 MG, UNKNOWN/D, ORAL
     Route: 048
     Dates: start: 20080723
  16. RABEPRAZOLE SODIUM [Concomitant]
  17. NESINA (ALOGLIPTIN BENZOATE) [Concomitant]

REACTIONS (3)
  - HERPES ZOSTER [None]
  - GLYCOSYLATED HAEMOGLOBIN INCREASED [None]
  - BLOOD UREA INCREASED [None]
